FAERS Safety Report 6360540-5 (Version None)
Quarter: 2009Q3

REPORT INFORMATION
  Report Type: 
  Country: None (occurrence: None)
  Receive Date: 20090917
  Receipt Date: 20090904
  Transmission Date: 20100115
  Serious: Yes (Other)
  Sender: FDA-Public Use
  Company Number: KR-PFIZER INC-2009264187

PATIENT

DRUGS (1)
  1. HALCION [Suspect]
     Indication: INSOMNIA
     Dosage: UNK
     Route: 048

REACTIONS (6)
  - DRY MOUTH [None]
  - DYSPEPSIA [None]
  - INSOMNIA [None]
  - PALPITATIONS [None]
  - PHARYNGEAL OEDEMA [None]
  - TINNITUS [None]
